FAERS Safety Report 8864623 (Version 1)
Quarter: 2012Q4

REPORT INFORMATION
  Report Type: 
  Country: US (occurrence: US)
  Receive Date: 20121024
  Receipt Date: 20121024
  Transmission Date: 20130627
  Serious: No
  Sender: FDA-Public Use
  Company Number: US-AMGEN-USASP2011068591

PATIENT
  Sex: Male
  Weight: 48.07 kg

DRUGS (24)
  1. ENBREL [Suspect]
     Indication: PRODUCT USED FOR UNKNOWN INDICATION
     Dosage: 50 mg, 2 times/wk
     Route: 058
  2. ZOCOR [Concomitant]
     Dosage: 5 mg, UNK
  3. COREG [Concomitant]
     Dosage: 3.125 mg, UNK
  4. LASIX                              /00032601/ [Concomitant]
     Dosage: 20 mg, UNK
  5. VIAGRA [Concomitant]
     Dosage: 25 mg, UNK
  6. ENALAPRIL [Concomitant]
     Dosage: 5 mg, UNK
  7. TRAMADOL HCL [Concomitant]
     Dosage: 50 mg, UNK
  8. SUCRALFATE [Concomitant]
     Dosage: 1 g, UNK
  9. DOXYCYCLINE [Concomitant]
     Dosage: 150 mg, UNK
  10. FLONASE [Concomitant]
  11. NEXIUM                             /01479302/ [Concomitant]
     Dosage: 20 mg, UNK
  12. VITAMIN D /00107901/ [Concomitant]
     Dosage: 50000 IU, UNK
  13. POTASSIUM CHLORIDE [Concomitant]
     Dosage: 10 mEq, UNK
  14. SEROQUEL [Concomitant]
     Dosage: 25 mg, UNK
  15. MULTIVITAMINS [Concomitant]
  16. MSM [Concomitant]
     Dosage: 500 mg, UNK
  17. VITAMIN B [Concomitant]
  18. OMEGA 3                            /01334101/ [Concomitant]
  19. LIPOFLAVON [Concomitant]
  20. LYSINE [Concomitant]
     Dosage: 500 mg, UNK
  21. FOLIC ACID [Concomitant]
     Dosage: 5 mg, UNK
  22. GLUCOSAMINE [Concomitant]
     Dosage: 167 mg, UNK
  23. LYCOPENE [Concomitant]
  24. HYDROCORTISONE [Concomitant]
     Route: 061

REACTIONS (3)
  - Fungal infection [Unknown]
  - Localised infection [Not Recovered/Not Resolved]
  - Paraesthesia [Unknown]
